FAERS Safety Report 4581581-4 (Version None)
Quarter: 2005Q1

REPORT INFORMATION
  Report Type: 
  Country: None (occurrence: None)
  Receive Date: 20050214
  Receipt Date: 20041122
  Transmission Date: 20050727
  Serious: No
  Sender: FDA-Public Use
  Company Number: US-GLAXOSMITHKLINE-A0534863A

PATIENT
  Age: 81 Year
  Sex: Female

DRUGS (2)
  1. LAMICTAL [Suspect]
     Indication: DEPRESSION
     Route: 048
     Dates: start: 20041118
  2. EFFEXOR [Concomitant]

REACTIONS (2)
  - DIZZINESS [None]
  - HEADACHE [None]
